FAERS Safety Report 4546536-4 (Version None)
Quarter: 2005Q1

REPORT INFORMATION
  Report Type: 
  Country: None (occurrence: None)
  Receive Date: 20050103
  Receipt Date: 20041222
  Transmission Date: 20050727
  Serious: Yes (Hospitalization)
  Sender: FDA-Public Use
  Company Number: 2004118436

PATIENT
  Age: 25 Year
  Sex: Male

DRUGS (1)
  1. CLINDAMYCIN HYDROCHLORIDE [Suspect]
     Indication: SINUSITIS
     Dosage: 1200 MG (300 MG, QID), ORAL
     Route: 048
     Dates: start: 20041125, end: 20041127

REACTIONS (6)
  - HEMIPARESIS [None]
  - HYPOAESTHESIA [None]
  - MENINGITIS [None]
  - MUSCULAR WEAKNESS [None]
  - NAUSEA [None]
  - PARAESTHESIA [None]
